FAERS Safety Report 5708981-0 (Version None)
Quarter: 2008Q2

REPORT INFORMATION
  Report Type: 
  Country: None (occurrence: None)
  Receive Date: 20080414
  Receipt Date: 20080414
  Transmission Date: 20081010
  Serious: Yes (Other)
  Sender: FDA-Public Use
  Company Number: None

PATIENT
  Sex: Female
  Weight: 90.7194 kg

DRUGS (1)
  1. CYMBALTA [Suspect]
     Indication: AFFECTIVE DISORDER
     Dosage: 30 MG Q H.S. PO
     Route: 048
     Dates: start: 20080313, end: 20080408

REACTIONS (3)
  - CHEST DISCOMFORT [None]
  - MUSCLE SPASMS [None]
  - MUSCLE TIGHTNESS [None]
